FAERS Safety Report 21043377 (Version 1)
Quarter: 2022Q3

REPORT INFORMATION
  Report Type: Spontaneous
  Country: CA (occurrence: CA)
  Receive Date: 20220705
  Receipt Date: 20220705
  Transmission Date: 20221027
  Serious: Yes (Other)
  Sender: FDA-Public Use
  Company Number: CA-PFIZER INC-202200924638

PATIENT
  Age: 70 Year
  Sex: Male

DRUGS (2)
  1. SIROLIMUS [Suspect]
     Active Substance: SIROLIMUS
     Indication: Prophylaxis against transplant rejection
     Dosage: UNK
  2. SIROLIMUS [Suspect]
     Active Substance: SIROLIMUS
     Indication: Lung transplant

REACTIONS (4)
  - Discomfort [Unknown]
  - Lymphoedema [Unknown]
  - Pain [Unknown]
  - Off label use [Unknown]
